FAERS Safety Report 6893134-3 (Version None)
Quarter: 2010Q3

REPORT INFORMATION
  Report Type: 
  Country: None (occurrence: None)
  Receive Date: 20100731
  Receipt Date: 20090604
  Transmission Date: 20110219
  Serious: No
  Sender: FDA-Public Use
  Company Number: US-PFIZER INC-2009223836

PATIENT
  Sex: Female
  Weight: 99 kg

DRUGS (5)
  1. FLAGYL [Suspect]
     Indication: DIARRHOEA
  2. CARDIZEM [Concomitant]
  3. COUMADIN [Concomitant]
  4. GLUCOPHAGE [Concomitant]
  5. LIMBITROL [Concomitant]

REACTIONS (2)
  - ANXIETY [None]
  - MALAISE [None]
